FAERS Safety Report 6324652-4 (Version None)
Quarter: 2009Q3

REPORT INFORMATION
  Report Type: 
  Country: None (occurrence: None)
  Receive Date: 20090824
  Receipt Date: 20090430
  Transmission Date: 20100115
  Serious: No
  Sender: FDA-Public Use
  Company Number: US-ABBOTT-09P-163-0571025-00

PATIENT
  Sex: Female
  Weight: 68.1 kg

DRUGS (7)
  1. NIASPAN [Suspect]
     Indication: BLOOD CHOLESTEROL INCREASED
     Dosage: INCREASED
     Route: 048
     Dates: start: 20090429, end: 20090429
  2. NIASPAN [Suspect]
     Route: 048
     Dates: start: 20090423, end: 20090423
  3. NIASPAN [Suspect]
     Dosage: REDUCED
     Route: 048
     Dates: start: 20090430
  4. IRON [Concomitant]
     Indication: ANAEMIA
     Route: 048
  5. FLOVENT [Concomitant]
     Indication: ASTHMA
     Route: 055
  6. SINGULAIR [Concomitant]
     Indication: ASTHMA
     Route: 048
  7. PROTONIX [Concomitant]
     Indication: GASTROOESOPHAGEAL REFLUX DISEASE
     Route: 048

REACTIONS (3)
  - FEELING HOT [None]
  - GENERALISED ERYTHEMA [None]
  - PRURITUS [None]
